FAERS Safety Report 6136355-X (Version None)
Quarter: 2009Q1

REPORT INFORMATION
  Report Type: 
  Country: None (occurrence: None)
  Receive Date: 20090330
  Receipt Date: 20090325
  Transmission Date: 20090719
  Serious: Yes (Death, Hospitalization)
  Sender: FDA-Public Use
  Company Number: US-ELI_LILLY_AND_COMPANY-US200710003292

PATIENT
  Sex: Female

DRUGS (12)
  1. BYETTA [Suspect]
     Indication: TYPE 2 DIABETES MELLITUS
     Dosage: 5 UG, 2/D
     Route: 058
     Dates: start: 20070620, end: 20070718
  2. BYETTA [Suspect]
     Dosage: 10 UG, 2/D
     Route: 058
     Dates: start: 20070719
  3. GLUCOPHAGE [Concomitant]
     Dosage: 1000 MG, 2/D
     Route: 048
     Dates: start: 20070620
  4. AVANDIA [Concomitant]
     Dosage: UNK, UNKNOWN
     Dates: end: 20070619
  5. DIABETA [Concomitant]
     Dosage: UNK, UNKNOWN
     Dates: end: 20070619
  6. BENICAR [Concomitant]
     Indication: HYPERTENSION
     Dosage: 40 MG, DAILY (1/D)
     Route: 048
     Dates: start: 20070419
  7. SULAR [Concomitant]
     Indication: HYPERTENSION
     Dosage: 10 MG, DAILY (1/D)
     Route: 048
     Dates: start: 19991110
  8. LEVOXYL [Concomitant]
     Indication: HYPOTHYROIDISM
     Dosage: 125 UG, DAILY (1/D)
     Route: 048
     Dates: start: 19991110
  9. VYTORIN [Concomitant]
     Indication: BLOOD CHOLESTEROL INCREASED
     Dosage: UNK, DAILY (1/D)
     Route: 048
     Dates: start: 20090216
  10. TENORMIN [Concomitant]
     Indication: HYPERTENSION
     Dosage: 100 MG, DAILY (1/D)
     Route: 048
     Dates: start: 20000405
  11. ACIPHEX [Concomitant]
     Indication: GASTROOESOPHAGEAL REFLUX DISEASE
     Dosage: 20 MG, DAILY (1/D)
     Route: 048
     Dates: start: 20070327
  12. ACIPHEX [Concomitant]
     Dosage: 20 MG, DAILY (1/D)
     Route: 048
     Dates: start: 20070327

REACTIONS (8)
  - DIZZINESS [None]
  - DYSPHAGIA [None]
  - DYSPNOEA [None]
  - FATIGUE [None]
  - HAEMORRHAGE INTRACRANIAL [None]
  - HEADACHE [None]
  - NAUSEA [None]
  - WEIGHT DECREASED [None]
